FAERS Safety Report 7090883-1 (Version None)
Quarter: 2010Q4

REPORT INFORMATION
  Report Type: 
  Country: None (occurrence: None)
  Receive Date: 20101012
  Receipt Date: 20100804
  Transmission Date: 20110411
  Serious: Yes (Death)
  Sender: FDA-Public Use
  Company Number: 1000014986

PATIENT
  Age: 19 Year
  Sex: Female

DRUGS (11)
  1. LEXAPRO [Suspect]
     Indication: DEPRESSION
     Dosage: 10 MG (10 MG, 1 IN 1 D), ORAL
     Route: 048
     Dates: end: 20100602
  2. LEXAPRO [Suspect]
     Indication: DEPRESSION
     Dosage: 20 MG (20 MG, 1 IN 1 D), ORAL; 15 MG (15 MG, 1 IN 1 D), ORAL
     Route: 048
     Dates: start: 20100603, end: 20100605
  3. LEXAPRO [Suspect]
     Indication: DEPRESSION
     Dosage: 20 MG (20 MG, 1 IN 1 D), ORAL; 15 MG (15 MG, 1 IN 1 D), ORAL
     Route: 048
     Dates: start: 20100606
  4. XANAX [Suspect]
     Indication: ANXIETY
     Dosage: 0.5 MG TID PRN, ORAL
     Route: 048
     Dates: start: 20100119
  5. VICODIN [Suspect]
     Indication: BACK PAIN
     Dosage: ORAL
     Route: 048
  6. ALCOHOL [Suspect]
     Dosage: ORAL
     Route: 048
  7. SEROQUEL XR [Suspect]
     Indication: BIPOLAR DISORDER
     Dosage: 100 MG (100 MG, 1 IN 1 D), ORAL; 200 MG (200 MG, 1 IN 1 D), ORAL
     Route: 048
     Dates: start: 20100606
  8. TRAZODONE [Concomitant]
  9. ULTRAM [Concomitant]
  10. IMITREX [Concomitant]
  11. SKELAXIN [Concomitant]

REACTIONS (2)
  - ACCIDENTAL OVERDOSE [None]
  - MANIA [None]
